FAERS Safety Report 19400674 (Version 6)
Quarter: 2021Q3

REPORT INFORMATION
  Report Type: Report from Study
  Country: FR (occurrence: FR)
  Receive Date: 20210610
  Receipt Date: 20210809
  Transmission Date: 20211014
  Serious: Yes (Hospitalization)
  Sender: FDA-Public Use
  Company Number: FR-GILEAD-2021-0535001

PATIENT
  Age: 38 Year
  Sex: Female
  Weight: 92 kg

DRUGS (10)
  1. PAROXETINE. [Concomitant]
     Active Substance: PAROXETINE
  2. NIVESTIM [Concomitant]
     Active Substance: FILGRASTIM
     Indication: PROPHYLAXIS
     Dosage: UNK
     Dates: start: 20210521, end: 20210524
  3. TRIMEBUTINE [Concomitant]
     Active Substance: TRIMEBUTINE
     Dosage: UNK
     Dates: start: 20210602
  4. PHLOROGLUCINOL [Concomitant]
     Active Substance: PHLOROGLUCINOL
     Dosage: UNK
     Dates: start: 20210602
  5. SACITUZUMAB GOVITECAN. [Suspect]
     Active Substance: SACITUZUMAB GOVITECAN
     Dosage: CYCLE 2
     Route: 042
  6. SACITUZUMAB GOVITECAN. [Suspect]
     Active Substance: SACITUZUMAB GOVITECAN
     Dosage: 180 MG
     Route: 042
  7. LOPERAMIDE [Concomitant]
     Active Substance: LOPERAMIDE
     Dosage: UNK
     Dates: start: 20210602
  8. SACITUZUMAB GOVITECAN. [Suspect]
     Active Substance: SACITUZUMAB GOVITECAN
     Indication: TRIPLE NEGATIVE BREAST CANCER
     Dosage: 10 MG/KG ON DAY 1 AND DAY 8 EVERY 21 DAYS
     Route: 042
     Dates: start: 20210520, end: 20210527
  9. TRAMADOL/PARACETAMOL [Concomitant]
     Active Substance: ACETAMINOPHEN\TRAMADOL
     Dosage: UNK
     Dates: start: 20210531
  10. HEXAQUINE [Concomitant]
     Active Substance: NIAOULI OIL\QUININE BENZOATE\THIAMINE HYDROCHLORIDE
     Dosage: UNK
     Dates: start: 20210531

REACTIONS (3)
  - Febrile neutropenia [Recovered/Resolved]
  - Colitis [Recovered/Resolved]
  - Product complaint [Unknown]

NARRATIVE: CASE EVENT DATE: 20210603
